FAERS Safety Report 15743711 (Version 2)
Quarter: 2018Q4

REPORT INFORMATION
  Report Type: Spontaneous
  Country: US (occurrence: US)
  Receive Date: 20181220
  Receipt Date: 20181226
  Transmission Date: 20190205
  Serious: No
  Sender: FDA-Public Use
  Company Number: US-PFIZER INC-2018518525

PATIENT
  Age: 99 Year
  Sex: Male

DRUGS (1)
  1. ALPRAZOLAM. [Suspect]
     Active Substance: ALPRAZOLAM
     Indication: INSOMNIA
     Dosage: 25 MG, UNK

REACTIONS (5)
  - Abnormal dreams [Unknown]
  - Drug effective for unapproved indication [Unknown]
  - Somnolence [Unknown]
  - Rash [Unknown]
  - Hypoacusis [Unknown]
